FAERS Safety Report 7442413-X (Version None)
Quarter: 2011Q2

REPORT INFORMATION
  Report Type: 
  Country: None (occurrence: None)
  Receive Date: 20110428
  Receipt Date: 20110419
  Transmission Date: 20111010
  Serious: Yes (Other)
  Sender: FDA-Public Use
  Company Number: FR-ROCHE-770571

PATIENT
  Age: 55 Year
  Sex: Female

DRUGS (1)
  1. BONIVA [Suspect]
     Route: 065
     Dates: end: 20090101

REACTIONS (1)
  - OSTEONECROSIS OF JAW [None]
